FAERS Safety Report 9395727 (Version 1)
Quarter: 2013Q3

REPORT INFORMATION
  Report Type: Spontaneous
  Country: US (occurrence: US)
  Receive Date: 20130711
  Receipt Date: 20130711
  Transmission Date: 20140515
  Serious: Yes (Hospitalization)
  Sender: FDA-Public Use
  Company Number: US-COVIDIEN/TYCO HEALTHCARE/MALLINCKRODT-T201300397

PATIENT
  Age: 57 Year
  Sex: Female
  Weight: 70.75 kg

DRUGS (2)
  1. OXYCODONE/ACETAMINOPHEN [Suspect]
     Indication: PAIN
     Dosage: 2 TABLETS Q 6 HOURS; 2 DOSES TAKEN
     Route: 048
     Dates: start: 20130119
  2. NEURONTIN [Concomitant]
     Dosage: 100 MG CAP, UNK

REACTIONS (5)
  - Respiratory rate decreased [Not Recovered/Not Resolved]
  - Heart rate increased [Not Recovered/Not Resolved]
  - Dyspnoea [Not Recovered/Not Resolved]
  - Tremor [Not Recovered/Not Resolved]
  - Dry mouth [Not Recovered/Not Resolved]
